FAERS Safety Report 11855235 (Version 1)
Quarter: 2015Q4

REPORT INFORMATION
  Report Type: Spontaneous
  Country: GR (occurrence: GR)
  Receive Date: 20151221
  Receipt Date: 20151221
  Transmission Date: 20160305
  Serious: Yes (Hospitalization, Other)
  Sender: FDA-Public Use
  Company Number: GR-ACTAVIS-2015-16410

PATIENT
  Sex: Female

DRUGS (12)
  1. HYDROCORTISONE (UNKNOWN) [Suspect]
     Active Substance: HYDROCORTISONE
     Dosage: 100 MG, Q6H
     Route: 042
  2. AZITHROMYCIN [Concomitant]
     Active Substance: AZITHROMYCIN ANHYDROUS
     Indication: DERMATITIS ALLERGIC
     Dosage: UNK
     Route: 065
  3. ALPHACALCIDOL [Concomitant]
     Active Substance: ALFACALCIDOL
     Dosage: 0.5 ?G, DAILY
     Route: 048
  4. AMOXICILLIN AND CLAVULANATE POTASSIUM [Suspect]
     Active Substance: AMOXICILLIN\CLAVULANATE POTASSIUM
     Indication: UPPER RESPIRATORY TRACT INFECTION
     Dosage: UNK
     Route: 048
  5. CALCIUM [Concomitant]
     Active Substance: CALCIUM
     Indication: HYPOPARATHYROIDISM
     Dosage: 2000 MG, DAILY
     Route: 048
  6. ALPHACALCIDOL [Concomitant]
     Active Substance: ALFACALCIDOL
     Indication: HYPOPARATHYROIDISM
     Dosage: 1 ?G, DAILY
     Route: 048
  7. AMOXICILLIN. [Suspect]
     Active Substance: AMOXICILLIN
     Indication: TOOTH INFECTION
     Dosage: UNK
     Route: 065
  8. HYDROCORTISONE (UNKNOWN) [Suspect]
     Active Substance: HYDROCORTISONE
     Indication: DERMATITIS ALLERGIC
     Dosage: 125 MG, Q6H
     Route: 042
  9. CALCIUM [Concomitant]
     Active Substance: CALCIUM
     Dosage: UNK
     Route: 042
  10. CALCIUM [Concomitant]
     Active Substance: CALCIUM
     Dosage: 1000 MG, DAILY
     Route: 048
  11. RANITIDINE [Concomitant]
     Active Substance: RANITIDINE\RANITIDINE HYDROCHLORIDE
     Indication: PRODUCT USED FOR UNKNOWN INDICATION
     Dosage: 150 MG, BID
     Route: 065
  12. LEVOCETIRIZINE [Concomitant]
     Active Substance: LEVOCETIRIZINE
     Indication: DERMATITIS ALLERGIC
     Dosage: 5 MG, UNK
     Route: 048

REACTIONS (4)
  - Hypocalcaemia [Recovered/Resolved]
  - Hypoaesthesia oral [Recovered/Resolved]
  - Paraesthesia [Recovered/Resolved]
  - Dermatitis allergic [None]
